FAERS Safety Report 25029660 (Version 1)
Quarter: 2025Q1

REPORT INFORMATION
  Report Type: Spontaneous
  Country: PT (occurrence: PT)
  Receive Date: 20250303
  Receipt Date: 20250303
  Transmission Date: 20250408
  Serious: Yes (Death)
  Sender: GENMAB
  Company Number: PT-ABBVIE-6159393

PATIENT
  Sex: Male

DRUGS (4)
  1. EPCORITAMAB [Suspect]
     Active Substance: EPCORITAMAB
     Indication: Diffuse large B-cell lymphoma
     Route: 058
  2. EPCORITAMAB [Suspect]
     Active Substance: EPCORITAMAB
     Route: 058
  3. EPCORITAMAB [Suspect]
     Active Substance: EPCORITAMAB
     Route: 058
  4. EPCORITAMAB [Suspect]
     Active Substance: EPCORITAMAB
     Route: 058

REACTIONS (1)
  - Diffuse large B-cell lymphoma [Fatal]
